FAERS Safety Report 11914369 (Version 3)
Quarter: 2016Q1

REPORT INFORMATION
  Report Type: Report from Study
  Country: CO (occurrence: CO)
  Receive Date: 20160113
  Receipt Date: 20160217
  Transmission Date: 20160526
  Serious: Yes (Hospitalization, Other)
  Sender: FDA-Public Use
  Company Number: CO-INCYTE CORPORATION-2015IN007011

PATIENT
  Sex: Female
  Weight: 47 kg

DRUGS (6)
  1. JAKAFI [Suspect]
     Active Substance: RUXOLITINIB
     Indication: PRIMARY MYELOFIBROSIS
     Dosage: 20 MG, QD
     Route: 048
     Dates: start: 20150202
  2. SPIRONOLACTONE. [Concomitant]
     Active Substance: SPIRONOLACTONE
  3. FUROSEMIDE. [Concomitant]
     Active Substance: FUROSEMIDE
  4. JAKAFI [Suspect]
     Active Substance: RUXOLITINIB
     Dosage: UNK
     Route: 048
     Dates: start: 20160201
  5. NADROPARIN [Concomitant]
     Active Substance: NADROPARIN
  6. OMEPRAZOLE. [Concomitant]
     Active Substance: OMEPRAZOLE

REACTIONS (9)
  - Underweight [Unknown]
  - Splenomegaly [Unknown]
  - Feeling abnormal [Unknown]
  - Malaise [Unknown]
  - Hepatic cirrhosis [Unknown]
  - Obstruction gastric [Unknown]
  - Pallor [Unknown]
  - Oesophageal obstruction [Unknown]
  - Depressed mood [Unknown]
